FAERS Safety Report 11968298 (Version 1)
Quarter: 2016Q1

REPORT INFORMATION
  Report Type: Spontaneous
  Country: US (occurrence: US)
  Receive Date: 20160127
  Receipt Date: 20160127
  Transmission Date: 20160526
  Serious: No
  Sender: FDA-Public Use
  Company Number: US-PAR PHARMACEUTICAL, INC-2015SCPR014426

PATIENT

DRUGS (1)
  1. DOXYCYCLINE. [Suspect]
     Active Substance: DOXYCYCLINE
     Indication: INFECTION
     Dosage: UNK UNK, UNKNOWN
     Route: 065

REACTIONS (3)
  - Vomiting [Recovered/Resolved]
  - Drug hypersensitivity [Recovered/Resolved]
  - Abdominal discomfort [Recovered/Resolved]
